FAERS Safety Report 18557034 (Version 2)
Quarter: 2020Q4

REPORT INFORMATION
  Report Type: Spontaneous
  Country: DE (occurrence: DE)
  Receive Date: 20201129
  Receipt Date: 20201206
  Transmission Date: 20210114
  Serious: Yes (Hospitalization)
  Sender: FDA-Public Use
  Company Number: DE-NOVOPROD-768598

PATIENT
  Age: 68 Year
  Sex: Male
  Weight: 118 kg

DRUGS (9)
  1. OZEMPIC [Suspect]
     Active Substance: SEMAGLUTIDE
     Indication: TYPE 2 DIABETES MELLITUS
     Dosage: 0.5 MG, QD
     Route: 065
     Dates: start: 20200616, end: 20201026
  2. BISOPROLOL [Concomitant]
     Active Substance: BISOPROLOL
     Dosage: 1-0-1, EACH 0.5 TABLET QD
     Route: 065
  3. METFORMIN [Concomitant]
     Active Substance: METFORMIN HYDROCHLORIDE
     Dosage: DECREASED TO 500 MG, QD
     Route: 065
     Dates: end: 20200901
  4. SPIRONOLACTON [Concomitant]
     Active Substance: SPIRONOLACTONE
     Dosage: UNK
     Route: 065
  5. METFORMIN [Concomitant]
     Active Substance: METFORMIN HYDROCHLORIDE
     Dosage: 1000 MG, QD
     Route: 065
     Dates: start: 202005
  6. MARCUMAR [Concomitant]
     Active Substance: PHENPROCOUMON
     Dosage: PAUSED SINCE AUGUST DUE TO COAGULATION DISORDER
     Route: 065
     Dates: end: 202008
  7. CARBIMAZOL [Concomitant]
     Active Substance: CARBIMAZOLE
     Indication: THYROID DISORDER
     Route: 065
  8. ADENURIC [Concomitant]
     Active Substance: FEBUXOSTAT
     Dosage: UNK
     Route: 065
  9. LANTUS [Concomitant]
     Active Substance: INSULIN GLARGINE
     Dosage: QD
     Route: 058
     Dates: start: 202005, end: 20200901

REACTIONS (4)
  - International normalised ratio decreased [Not Recovered/Not Resolved]
  - Glycosylated haemoglobin decreased [Unknown]
  - Blood glucose decreased [Unknown]
  - Colorectal cancer metastatic [Unknown]

NARRATIVE: CASE EVENT DATE: 202008
